FAERS Safety Report 13176990 (Version 1)
Quarter: 2017Q1

REPORT INFORMATION
  Report Type: Report from Study
  Country: US (occurrence: US)
  Receive Date: 20170201
  Receipt Date: 20170201
  Transmission Date: 20170428
  Serious: No
  Sender: FDA-Public Use
  Company Number: US-EXELIXIS-CABO-16006845

PATIENT
  Sex: Male

DRUGS (2)
  1. TUMS [Concomitant]
     Active Substance: CALCIUM CARBONATE
  2. COMETRIQ [Suspect]
     Active Substance: CABOZANTINIB S-MALATE
     Indication: THYROID CANCER
     Dosage: 140 MG, QD
     Route: 048
     Dates: start: 20160729, end: 20161002

REACTIONS (16)
  - Headache [Unknown]
  - Hypertension [Not Recovered/Not Resolved]
  - Constipation [Not Recovered/Not Resolved]
  - Nausea [Not Recovered/Not Resolved]
  - Pain [Unknown]
  - Pancreatic enzymes increased [Unknown]
  - Ageusia [Unknown]
  - Glossodynia [Not Recovered/Not Resolved]
  - Dry skin [Not Recovered/Not Resolved]
  - Muscle spasms [Recovering/Resolving]
  - Hypoaesthesia oral [Unknown]
  - Acne [Unknown]
  - Tooth repair [Unknown]
  - Weight decreased [Unknown]
  - Paraesthesia [Recovering/Resolving]
  - Rash [Unknown]
